FAERS Safety Report 5537614-1 (Version None)
Quarter: 2007Q4

REPORT INFORMATION
  Report Type: 
  Country: None (occurrence: None)
  Receive Date: 20071207
  Receipt Date: 20071203
  Transmission Date: 20080405
  Serious: Yes (Life-Threatening, Hospitalization)
  Sender: FDA-Public Use
  Company Number: GB-ASTRAZENECA-2007GB02447

PATIENT
  Age: 68 Year
  Sex: Female
  Weight: 60 kg

DRUGS (12)
  1. ATENOLOL [Suspect]
     Indication: HYPERTENSION
     Route: 048
     Dates: end: 20071024
  2. CO-AMILOFRUSE [Suspect]
     Indication: HYPERTENSION
     Route: 048
     Dates: end: 20071024
  3. NIFEDIPINE [Suspect]
     Indication: HYPERTENSION
     Route: 048
     Dates: end: 20071024
  4. AMITRIPTLINE HCL [Concomitant]
     Indication: SLEEP DISORDER
     Route: 048
     Dates: end: 20071024
  5. ASPIRIN [Concomitant]
     Indication: CARDIOVASCULAR DISORDER
     Route: 048
  6. ATORVASTATIN [Concomitant]
     Indication: CARDIOVASCULAR DISORDER
     Route: 048
  7. COD LIVER OIL [Concomitant]
     Indication: ARTHRITIS
  8. CO-PROXAMOL [Concomitant]
     Indication: ARTHRITIS
     Route: 048
  9. GLYBURIDE [Concomitant]
     Indication: DIABETES MELLITUS
     Route: 048
     Dates: end: 20071024
  10. IBUPROFEN [Concomitant]
     Indication: ARTHRITIS
     Route: 048
  11. INSULATARD [Concomitant]
     Indication: DIABETES MELLITUS
     Route: 058
  12. METFORMIN HCL [Concomitant]
     Indication: DIABETES MELLITUS

REACTIONS (6)
  - ATRIOVENTRICULAR BLOCK COMPLETE [None]
  - BLOOD GLUCOSE INCREASED [None]
  - BRADYCARDIA [None]
  - HYPOTENSION [None]
  - LACTIC ACIDOSIS [None]
  - MALAISE [None]
